FAERS Safety Report 8914498 (Version 1)
Quarter: 2012Q4

REPORT INFORMATION
  Report Type: 
  Country: CA (occurrence: CA)
  Receive Date: 20121119
  Receipt Date: 20121119
  Transmission Date: 20130627
  Serious: Yes (Other)
  Sender: FDA-Public Use
  Company Number: PHHY2012CA101834

PATIENT
  Age: 40 Year
  Sex: Female

DRUGS (2)
  1. GILENYA [Suspect]
     Indication: RELAPSING-REMITTING MULTIPLE SCLEROSIS
     Dosage: 0.5 mg, QD
     Route: 048
     Dates: start: 20120116
  2. RITALIN [Concomitant]

REACTIONS (4)
  - Corneal erosion [Unknown]
  - Eye swelling [Recovered/Resolved]
  - Eye infection [Recovering/Resolving]
  - Eye pain [Recovered/Resolved]
